FAERS Safety Report 8549923-2 (Version None)
Quarter: 2012Q3

REPORT INFORMATION
  Report Type: 
  Country: None (occurrence: None)
  Receive Date: 20120730
  Receipt Date: 20120726
  Transmission Date: 20120928
  Serious: Yes (Hospitalization)
  Sender: FDA-Public Use
  Company Number: US-BAYER-2012-075719

PATIENT
  Age: 31 Year
  Sex: Female

DRUGS (1)
  1. MAGNEVIST [Suspect]
     Indication: NUCLEAR MAGNETIC RESONANCE IMAGING
     Dosage: UNK
     Route: 042
     Dates: start: 20120725, end: 20120725

REACTIONS (7)
  - ASTHENIA [None]
  - CONVULSION [None]
  - CARDIAC ARREST [None]
  - PRURITUS [None]
  - ANAPHYLACTIC SHOCK [None]
  - DYSPNOEA [None]
  - DIZZINESS [None]
